FAERS Safety Report 10736833 (Version 1)
Quarter: 2015Q1

REPORT INFORMATION
  Report Type: Spontaneous
  Country: US (occurrence: None)
  Receive Date: 20150122
  Receipt Date: 20150122
  Transmission Date: 20150721
  Serious: Yes (Other)
  Sender: FDA-Public Use
  Company Number: None

PATIENT
  Age: 53 Year
  Sex: Female
  Weight: 81.65 kg

DRUGS (2)
  1. HYDROCODONE/HOM 5-1.5/5 SYRUP [Suspect]
     Active Substance: HOMATROPINE METHYLBROMIDE\HYDROCODONE BITARTRATE
     Indication: COUGH
     Dosage: 1/2 TEASPOON
     Dates: start: 20150119
  2. HYDROCODONE/HOM 5-1.5/5 SYRUP [Suspect]
     Active Substance: HOMATROPINE METHYLBROMIDE\HYDROCODONE BITARTRATE
     Indication: BRONCHITIS
     Dosage: 1/2 TEASPOON
     Dates: start: 20150119

REACTIONS (2)
  - Insomnia [None]
  - Palpitations [None]

NARRATIVE: CASE EVENT DATE: 20150119
